FAERS Safety Report 9304195 (Version 4)
Quarter: 2014Q3

REPORT INFORMATION
  Report Type: Spontaneous
  Country: US (occurrence: US)
  Receive Date: 20130522
  Receipt Date: 20140811
  Transmission Date: 20150326
  Serious: Yes (Disabling)
  Sender: FDA-Public Use
  Company Number: US-009507513-1305USA010816

PATIENT
  Sex: Female
  Weight: 70.3 kg

DRUGS (1)
  1. NUVARING [Suspect]
     Active Substance: ETHINYL ESTRADIOL\ETONOGESTREL
     Indication: HOT FLUSH
     Dosage: IN FOR 3 WKS, OUT FOR 1 WK
     Route: 067
     Dates: start: 2007, end: 2010

REACTIONS (10)
  - Anxiety [Unknown]
  - Anaemia [Unknown]
  - Menorrhagia [Unknown]
  - Headache [Unknown]
  - Arthralgia [Unknown]
  - Off label use [Unknown]
  - Swelling [Unknown]
  - Breast disorder [Unknown]
  - Polymenorrhoea [Unknown]
  - Deep vein thrombosis [Recovered/Resolved]

NARRATIVE: CASE EVENT DATE: 2007
